FAERS Safety Report 6787791-X (Version None)
Quarter: 2010Q2

REPORT INFORMATION
  Report Type: 
  Country: None (occurrence: None)
  Receive Date: 20100623
  Receipt Date: 20070919
  Transmission Date: 20101027
  Serious: Yes (Other)
  Sender: FDA-Public Use
  Company Number: US-PFIZER INC-2007067903

PATIENT
  Sex: Female
  Weight: 82 kg

DRUGS (2)
  1. DEPO-PROVERA SUSPENSION/INJ [Suspect]
     Indication: CONTRACEPTION
     Dosage: 1ST CYCLE OF INJECTIONS
     Dates: start: 19940101, end: 19960401
  2. DEPO-PROVERA SUSPENSION/INJ [Suspect]
     Dosage: LAST CYCLE OF INJECTIONS
     Dates: start: 19990401, end: 20050501

REACTIONS (2)
  - OSTEOPOROSIS [None]
  - VOMITING [None]
